FAERS Safety Report 4349121-2 (Version None)
Quarter: 2004Q2

REPORT INFORMATION
  Report Type: 
  Country: None (occurrence: None)
  Receive Date: 20040427
  Receipt Date: 20040427
  Transmission Date: 20050107
  Serious: Yes (Life-Threatening, Hospitalization)
  Sender: FDA-Public Use
  Company Number: None

PATIENT
  Sex: Male
  Weight: 115.6672 kg

DRUGS (14)
  1. SIMVASTATIN [Suspect]
     Indication: HYPERLIPIDAEMIA
     Dosage: 40 MG QHS ORAL
     Route: 048
     Dates: start: 20000502, end: 20040426
  2. WARFARIN SODIUM [Concomitant]
  3. TAMSULOSIN [Concomitant]
  4. RISPERIDONE [Concomitant]
  5. OMEPRAZOLE [Concomitant]
  6. METOPROLOL SA [Concomitant]
  7. LISINOPRIL [Concomitant]
  8. ISOSORBIDE MONONITRATE [Concomitant]
  9. FUROSEMIDE [Concomitant]
  10. DIGOXIN [Concomitant]
  11. POTASSIUM CHLORIDE [Concomitant]
  12. MULTI-VITAMIN [Concomitant]
  13. COLCHICINE [Concomitant]
  14. ALLOPURINOL TAB [Concomitant]

REACTIONS (1)
  - RHABDOMYOLYSIS [None]
